FAERS Safety Report 7220258-3 (Version None)
Quarter: 2011Q1

REPORT INFORMATION
  Report Type: 
  Country: None (occurrence: None)
  Receive Date: 20110111
  Receipt Date: 20110104
  Transmission Date: 20110831
  Serious: No
  Sender: FDA-Public Use
  Company Number: TR-ACTELION-A-CH2010-42520

PATIENT
  Age: 35 Year
  Sex: Female

DRUGS (2)
  1. TRACLEER [Suspect]
     Indication: PULMONARY ARTERIAL HYPERTENSION
     Dosage: UNK
     Route: 048
  2. WARFARIN [Concomitant]

REACTIONS (2)
  - PREGNANCY [None]
  - ABORTION INDUCED [None]
